FAERS Safety Report 9294548 (Version 2)
Quarter: 2013Q2

REPORT INFORMATION
  Report Type: Spontaneous
  Country: US (occurrence: None)
  Receive Date: 20121227
  Receipt Date: 20130507
  Transmission Date: 20140414
  Serious: No
  Sender: FDA-Public Use
  Company Number: PHEH2012US022873

PATIENT
  Sex: Female
  Weight: 68.9 kg

DRUGS (1)
  1. AFINITOR [Suspect]
     Indication: BREAST CANCER
     Route: 048
     Dates: start: 20121020

REACTIONS (5)
  - Rash [None]
  - Constipation [None]
  - Dizziness [None]
  - Fatigue [None]
  - Dysgeusia [None]
